FAERS Safety Report 10743063 (Version 1)
Quarter: 2015Q1

REPORT INFORMATION
  Report Type: Spontaneous
  Country: US (occurrence: US)
  Receive Date: 20150127
  Receipt Date: 20150127
  Transmission Date: 20150721
  Serious: No
  Sender: FDA-Public Use
  Company Number: US-GLAXOSMITHKLINE-A1086383A

PATIENT

DRUGS (1)
  1. BUPROPION HYDROCHLORIDE TABLET [Suspect]
     Active Substance: BUPROPION HYDROCHLORIDE
     Dosage: 300 MG, INCREASED TO 450 MG
     Route: 065

REACTIONS (4)
  - Drug ineffective [Unknown]
  - Decreased activity [Unknown]
  - Adverse drug reaction [Unknown]
  - Limb injury [Unknown]
